FAERS Safety Report 6063424-5 (Version None)
Quarter: 2009Q1

REPORT INFORMATION
  Report Type: 
  Country: None (occurrence: None)
  Receive Date: 20090129
  Receipt Date: 20081222
  Transmission Date: 20090719
  Serious: Yes (Hospitalization)
  Sender: FDA-Public Use
  Company Number: KV200801653

PATIENT
  Sex: Male

DRUGS (1)
  1. ISOSROBIDE MONONITRATE (ISOSORIBIDE MONONITRATE) [Suspect]
     Indication: DRUG USE FOR UNKNOWN INDICATION
     Dosage: 60 MG, ORAL
     Route: 048
     Dates: start: 19980101

REACTIONS (2)
  - PRODUCT QUALITY ISSUE [None]
  - RUPTURED CEREBRAL ANEURYSM [None]
